FAERS Safety Report 8990419 (Version 3)
Quarter: 2013Q1

REPORT INFORMATION
  Report Type: Report from Study
  Country: GB (occurrence: GB)
  Receive Date: 20121228
  Receipt Date: 20130115
  Transmission Date: 20140127
  Serious: Yes (Hospitalization)
  Sender: FDA-Public Use
  Company Number: GB-ABBOTT-12P-167-1025001-00

PATIENT
  Age: 52 Year
  Sex: Male
  Weight: 94 kg

DRUGS (1)
  1. EPROSARTAN [Suspect]
     Indication: HYPERTENSION
     Dosage: 2 TABS, WASHOUT PLACEBO
     Route: 048
     Dates: start: 20121214, end: 20121216

REACTIONS (1)
  - Atrial fibrillation [Not Recovered/Not Resolved]
